FAERS Safety Report 10763621 (Version 1)
Quarter: 2015Q1

REPORT INFORMATION
  Report Type: Spontaneous
  Country: US (occurrence: US)
  Receive Date: 20150204
  Receipt Date: 20150204
  Transmission Date: 20150721
  Serious: Yes (Other)
  Sender: FDA-Public Use
  Company Number: US-GLAXOSMITHKLINE-US2014037795

PATIENT
  Age: 38 Year
  Sex: Female

DRUGS (6)
  1. OMEPRAZOLE. [Concomitant]
     Active Substance: OMEPRAZOLE
  2. BENLYSTA [Suspect]
     Active Substance: BELIMUMAB
     Indication: SYSTEMIC LUPUS ERYTHEMATOSUS
     Dosage: UNK, U
     Route: 065
     Dates: start: 201408
  3. BENLYSTA [Suspect]
     Active Substance: BELIMUMAB
     Dates: start: 201408
  4. SINGULAIR [Concomitant]
     Active Substance: MONTELUKAST SODIUM
  5. MEDROL [Concomitant]
     Active Substance: METHYLPREDNISOLONE
  6. ATENOLOL. [Concomitant]
     Active Substance: ATENOLOL

REACTIONS (4)
  - Impaired healing [Recovered/Resolved]
  - Rash [Not Recovered/Not Resolved]
  - Laceration [Recovered/Resolved]
  - Wound infection [Recovered/Resolved]

NARRATIVE: CASE EVENT DATE: 201410
